FAERS Safety Report 10495978 (Version 1)
Quarter: 2014Q4

REPORT INFORMATION
  Report Type: Spontaneous
  Country: CH (occurrence: CH)
  Receive Date: 20141003
  Receipt Date: 20141003
  Transmission Date: 20150528
  Serious: Yes (Hospitalization)
  Sender: FDA-Public Use
  Company Number: CH-ASTRAZENECA-2014SE72280

PATIENT
  Age: 23921 Day
  Sex: Male

DRUGS (9)
  1. SYMBICORT [Concomitant]
     Active Substance: BUDESONIDE\FORMOTEROL FUMARATE DIHYDRATE
  2. ATROVENT [Concomitant]
     Active Substance: IPRATROPIUM BROMIDE
  3. NEBIVOLOL [Concomitant]
     Active Substance: NEBIVOLOL
  4. PANTOZOL [Concomitant]
     Active Substance: PANTOPRAZOLE SODIUM
  5. CRESTOR [Concomitant]
     Active Substance: ROSUVASTATIN CALCIUM
  6. KALIUM HAUSMANN [Concomitant]
  7. FLUIMUCIL [Concomitant]
     Active Substance: ACETYLCYSTEINE
  8. BRILIQUE [Suspect]
     Active Substance: TICAGRELOR
     Route: 048
     Dates: start: 20140820, end: 20140827
  9. ASPIRIN CARDIO [Concomitant]
     Active Substance: ASPIRIN
     Dates: start: 20140820

REACTIONS (1)
  - Bronchospasm [Recovered/Resolved]

NARRATIVE: CASE EVENT DATE: 20140827
